FAERS Safety Report 12671839 (Version 1)
Quarter: 2016Q3

REPORT INFORMATION
  Report Type: Spontaneous
  Country: US (occurrence: US)
  Receive Date: 20160822
  Receipt Date: 20160822
  Transmission Date: 20161109
  Serious: Yes (Other)
  Sender: FDA-Public Use
  Company Number: US-GLAXOSMITHKLINE-US2016120262

PATIENT
  Age: 62 Year
  Sex: Female

DRUGS (17)
  1. OMEGA-3-ACID ETHYL ESTERS. [Suspect]
     Active Substance: OMEGA-3-ACID ETHYL ESTERS
     Indication: BLOOD CHOLESTEROL INCREASED
     Dosage: 1 G, BID
     Route: 048
     Dates: start: 201410
  2. LEVOTHYROXINE. [Concomitant]
     Active Substance: LEVOTHYROXINE
  3. MAGNESIUM [Concomitant]
     Active Substance: MAGNESIUM
  4. ESTER C [Concomitant]
  5. GLUCOSAMINE CHONDROITIN [Concomitant]
     Active Substance: CHONDROITIN SULFATE (BOVINE)\GLUCOSAMINE HYDROCHLORIDE
  6. TEA [Concomitant]
     Active Substance: TEA LEAF
  7. COMBIGAN [Concomitant]
     Active Substance: BRIMONIDINE TARTRATE\TIMOLOL MALEATE
  8. ECHINACEA AND GOLDENSEAL [Concomitant]
  9. RESVERATROL [Concomitant]
     Active Substance: RESVERATROL
  10. LOVAZA [Suspect]
     Active Substance: OMEGA-3-ACID ETHYL ESTERS
     Indication: BLOOD TRIGLYCERIDES INCREASED
  11. GEMFIBROZIL. [Concomitant]
     Active Substance: GEMFIBROZIL
  12. OMEGA-3-ACID ETHYL ESTERS. [Suspect]
     Active Substance: OMEGA-3-ACID ETHYL ESTERS
     Indication: BLOOD TRIGLYCERIDES INCREASED
  13. LOVAZA [Suspect]
     Active Substance: OMEGA-3-ACID ETHYL ESTERS
     Indication: BLOOD CHOLESTEROL INCREASED
     Dosage: 1 G, BID
     Route: 048
  14. BLACK ELDERBERRY [Concomitant]
  15. OIL OF OREGANO [Concomitant]
  16. LUMIGAN [Concomitant]
     Active Substance: BIMATOPROST
  17. VITAMIN D3 [Concomitant]
     Active Substance: CHOLECALCIFEROL

REACTIONS (2)
  - Dyspepsia [Recovered/Resolved]
  - Glaucoma [Not Recovered/Not Resolved]

NARRATIVE: CASE EVENT DATE: 20141231
